FAERS Safety Report 12092348 (Version 1)
Quarter: 2016Q1

REPORT INFORMATION
  Report Type: Spontaneous
  Country: US (occurrence: None)
  Receive Date: 20160217
  Receipt Date: 20160217
  Transmission Date: 20160526
  Serious: Yes (Life-Threatening, Hospitalization)
  Sender: FDA-Public Use
  Company Number: None

PATIENT
  Age: 76 Year
  Sex: Male
  Weight: 93 kg

DRUGS (14)
  1. APIXABAN [Suspect]
     Active Substance: APIXABAN
     Indication: TRANSIENT ISCHAEMIC ATTACK
     Route: 048
  2. ATORVASTATIN [Concomitant]
     Active Substance: ATORVASTATIN
  3. DIGOXIN. [Concomitant]
     Active Substance: DIGOXIN
  4. INSULIN [Concomitant]
     Active Substance: INSULIN NOS
  5. TAMSULOSIN [Concomitant]
     Active Substance: TAMSULOSIN
  6. TIOTROPIUM [Concomitant]
     Active Substance: TIOTROPIUM
  7. ISOSORBIDE MONONITRATE. [Concomitant]
     Active Substance: ISOSORBIDE MONONITRATE
  8. ALLOPURINOL. [Concomitant]
     Active Substance: ALLOPURINOL
  9. ASPIRIN. [Concomitant]
     Active Substance: ASPIRIN
  10. AMIODARONE [Concomitant]
     Active Substance: AMIODARONE
  11. FUROSEMIDE. [Concomitant]
     Active Substance: FUROSEMIDE
  12. APIXABAN [Suspect]
     Active Substance: APIXABAN
     Indication: ATRIAL FIBRILLATION
     Route: 048
  13. SPIRONOLACTONE. [Concomitant]
     Active Substance: SPIRONOLACTONE
  14. CARVEDILOL. [Concomitant]
     Active Substance: CARVEDILOL

REACTIONS (2)
  - Gastrointestinal haemorrhage [None]
  - Faeces discoloured [None]

NARRATIVE: CASE EVENT DATE: 20160215
